FAERS Safety Report 12922301 (Version 2)
Quarter: 2017Q1

REPORT INFORMATION
  Report Type: Spontaneous
  Country: US (occurrence: US)
  Receive Date: 20161108
  Receipt Date: 20170210
  Transmission Date: 20170428
  Serious: No
  Sender: FDA-Public Use
  Company Number: US-PFIZER INC-2016479227

PATIENT
  Age: 66 Year
  Sex: Female

DRUGS (3)
  1. LYRICA [Suspect]
     Active Substance: PREGABALIN
     Indication: PAIN
     Dosage: 300 MG, 3X/DAY
  2. LYRICA [Suspect]
     Active Substance: PREGABALIN
     Indication: BALANCE DISORDER
     Dosage: 150 MG, UNK
     Dates: start: 2006
  3. LYRICA [Suspect]
     Active Substance: PREGABALIN
     Indication: HEAD DISCOMFORT

REACTIONS (4)
  - Pain [Unknown]
  - Malaise [Unknown]
  - Prescribed overdose [Unknown]
  - Headache [Unknown]
